FAERS Safety Report 21330337 (Version 1)
Quarter: 2022Q3

REPORT INFORMATION
  Report Type: Spontaneous
  Country: ZA (occurrence: ZA)
  Receive Date: 20220913
  Receipt Date: 20220913
  Transmission Date: 20221027
  Serious: Yes (Death, Hospitalization)
  Sender: FDA-Public Use
  Company Number: ZA-PFIZER INC-PV202200060688

PATIENT
  Age: 52 Year
  Sex: Female
  Weight: 135 kg

DRUGS (1)
  1. ENCORAFENIB [Suspect]
     Active Substance: ENCORAFENIB
     Dosage: UNK

REACTIONS (1)
  - Colostomy closure [Fatal]

NARRATIVE: CASE EVENT DATE: 20220908
